FAERS Safety Report 6105102-X (Version None)
Quarter: 2009Q1

REPORT INFORMATION
  Report Type: 
  Country: None (occurrence: None)
  Receive Date: 20090306
  Receipt Date: 20090223
  Transmission Date: 20090719
  Serious: Yes (Other)
  Sender: FDA-Public Use
  Company Number: GR-NOVOPROD-281412

PATIENT
  Age: 14 Year
  Sex: Male
  Weight: 54 kg

DRUGS (4)
  1. NORDITROPIN [Suspect]
     Indication: GROWTH HORMONE DEFICIENCY
     Dosage: 8 MG, QW
     Route: 058
     Dates: start: 20051001
  2. NORDITROPIN [Suspect]
     Dosage: 1 MG, QD
     Route: 058
  3. THYROXINE [Concomitant]
     Dosage: FOUR TIMES WEEKLY
  4. THYROXINE [Concomitant]
     Dosage: THREE TIMES WEEKLY

REACTIONS (5)
  - BODY HEIGHT DECREASED [None]
  - INJECTION SITE OEDEMA [None]
  - INJECTION SITE PRURITUS [None]
  - PAPILLOEDEMA [None]
  - SKIN HYPERTROPHY [None]
